FAERS Safety Report 13686657 (Version 1)
Quarter: 2017Q2

REPORT INFORMATION
  Report Type: Spontaneous
  Country: US (occurrence: US)
  Receive Date: 20170623
  Receipt Date: 20170623
  Transmission Date: 20170830
  Serious: No
  Sender: FDA-Public Use
  Company Number: US-ROCHE-1005055

PATIENT
  Sex: Female

DRUGS (1)
  1. XELODA [Suspect]
     Active Substance: CAPECITABINE
     Indication: BREAST CANCER METASTATIC
     Dosage: 21 DAY CYCLE
     Route: 048

REACTIONS (5)
  - Ill-defined disorder [Unknown]
  - Alopecia [Unknown]
  - Peripheral swelling [Unknown]
  - Motor dysfunction [Unknown]
  - Unevaluable event [Unknown]
